FAERS Safety Report 4866437-1 (Version None)
Quarter: 2005Q4

REPORT INFORMATION
  Report Type: 
  Country: None (occurrence: None)
  Receive Date: 20051227
  Receipt Date: 20051005
  Transmission Date: 20060501
  Serious: Yes (Hospitalization)
  Sender: FDA-Public Use
  Company Number: US-MERCK-0510USA05183

PATIENT
  Age: 68 Year
  Sex: Female
  Weight: 64 kg

DRUGS (9)
  1. VIOXX [Suspect]
     Indication: PAIN IN EXTREMITY
     Route: 048
     Dates: start: 20020701, end: 20020710
  2. VIOXX [Suspect]
     Route: 048
     Dates: start: 20020710, end: 20020801
  3. VIOXX [Suspect]
     Indication: MUSCULOSKELETAL DISCOMFORT
     Route: 048
     Dates: start: 20020701, end: 20020710
  4. VIOXX [Suspect]
     Route: 048
     Dates: start: 20020710, end: 20020801
  5. LIPITOR [Concomitant]
     Route: 065
  6. CELESTONE TAB [Concomitant]
     Indication: PAIN
     Route: 051
  7. XYLOCAINE [Concomitant]
     Indication: PAIN
     Route: 051
  8. VICOPROFEN [Concomitant]
     Route: 065
  9. VALTREX [Concomitant]
     Route: 065

REACTIONS (7)
  - ANGINA UNSTABLE [None]
  - CARDIOVASCULAR DISORDER [None]
  - CORONARY ARTERY DISEASE [None]
  - DRUG HYPERSENSITIVITY [None]
  - INTERVERTEBRAL DISC PROTRUSION [None]
  - MYOCARDIAL INFARCTION [None]
  - RESPIRATORY TRACT INFECTION VIRAL [None]
